FAERS Safety Report 24566135 (Version 2)
Quarter: 2025Q3

REPORT INFORMATION
  Report Type: Report from Study
  Country: US (occurrence: US)
  Receive Date: 20241030
  Receipt Date: 20250809
  Transmission Date: 20251020
  Serious: Yes (Other)
  Sender: ALEXION PHARMACEUTICALS
  Company Number: US-AstraZeneca-CH-00730938A

PATIENT
  Sex: Female

DRUGS (21)
  1. TEZEPELUMAB [Suspect]
     Active Substance: TEZEPELUMAB
     Route: 065
  2. TEZEPELUMAB [Suspect]
     Active Substance: TEZEPELUMAB
  3. ZOCOR [Concomitant]
     Active Substance: SIMVASTATIN
  4. HYDROCHLOROTHIAZIDE [Concomitant]
     Active Substance: HYDROCHLOROTHIAZIDE
  5. CALCIUM CITRATE\VITAMIN D [Concomitant]
     Active Substance: CALCIUM CITRATE\VITAMIN D
  6. OMEGA-3 FATTY ACIDS [Concomitant]
     Active Substance: OMEGA-3 FATTY ACIDS
  7. ALBUTEROL SULFATE [Concomitant]
     Active Substance: ALBUTEROL SULFATE
  8. SINGULAIR [Concomitant]
     Active Substance: MONTELUKAST SODIUM
  9. Bromid [Concomitant]
  10. EPIPEN [Concomitant]
     Active Substance: EPINEPHRINE
  11. EPINEPHRINE [Concomitant]
     Active Substance: EPINEPHRINE
  12. XOLAIR [Concomitant]
     Active Substance: OMALIZUMAB
  13. SPIRIVA RESPIMAT [Concomitant]
     Active Substance: TIOTROPIUM BROMIDE
  14. FORTEO [Concomitant]
     Active Substance: TERIPARATIDE
  15. LEVOFLOXACIN [Concomitant]
     Active Substance: LEVOFLOXACIN
  16. AZITHROMYCIN [Concomitant]
     Active Substance: AZITHROMYCIN
  17. OMALIZUMAB [Concomitant]
     Active Substance: OMALIZUMAB
  18. FASENRA [Concomitant]
     Active Substance: BENRALIZUMAB
  19. PREDNISONE [Concomitant]
     Active Substance: PREDNISONE
  20. CEFUROXIME AXETIL [Concomitant]
     Active Substance: CEFUROXIME AXETIL
  21. ADVAIR HFA [Concomitant]
     Active Substance: FLUTICASONE PROPIONATE\SALMETEROL XINAFOATE

REACTIONS (14)
  - Pneumothorax [Unknown]
  - Upper-airway cough syndrome [Unknown]
  - Insomnia [Unknown]
  - Hypersomnia [Unknown]
  - Pneumonia [Unknown]
  - Dysphonia [Unknown]
  - COVID-19 pneumonia [Unknown]
  - Essential hypertension [Unknown]
  - Mycobacterium avium complex infection [Unknown]
  - Cough [Unknown]
  - Hypercholesterolaemia [Unknown]
  - Bronchospasm [Unknown]
  - Pulmonary mass [Unknown]
  - Asthma [Unknown]
